FAERS Safety Report 23256026 (Version 6)
Quarter: 2024Q3

REPORT INFORMATION
  Report Type: Spontaneous
  Country: US (occurrence: US)
  Receive Date: 20231204
  Receipt Date: 20240828
  Transmission Date: 20241017
  Serious: No
  Sender: ELI LILLY AND CO
  Company Number: US-ELI_LILLY_AND_COMPANY-US202312000335

PATIENT
  Age: 54 Year
  Sex: Male

DRUGS (2)
  1. VERZENIO [Suspect]
     Active Substance: ABEMACICLIB
     Indication: Malignant nipple neoplasm male
     Dosage: 150 MG, BID
     Route: 048
     Dates: end: 202408
  2. MUCINEX [Suspect]
     Active Substance: GUAIFENESIN
     Indication: Product used for unknown indication
     Dosage: UNK UNK, UNKNOWN
     Route: 065

REACTIONS (9)
  - Peripheral swelling [Unknown]
  - Malaise [Unknown]
  - Hot flush [Unknown]
  - Constipation [Unknown]
  - Headache [Unknown]
  - Night sweats [Unknown]
  - Diarrhoea [Unknown]
  - Fatigue [Unknown]
  - Therapeutic product effect incomplete [Unknown]

NARRATIVE: CASE EVENT DATE: 20240801
